FAERS Safety Report 20192573 (Version 1)
Quarter: 2021Q4

REPORT INFORMATION
  Report Type: Spontaneous
  Country: ME (occurrence: ME)
  Receive Date: 20211216
  Receipt Date: 20211216
  Transmission Date: 20220303
  Serious: Yes (Death, Other)
  Sender: FDA-Public Use
  Company Number: ME-NOVARTISPH-NVSC2021ME285356

PATIENT
  Sex: Male

DRUGS (1)
  1. AFINITOR [Suspect]
     Active Substance: EVEROLIMUS
     Indication: Renal cell carcinoma
     Dosage: UNK
     Route: 065
     Dates: start: 202005

REACTIONS (19)
  - Death [Fatal]
  - Metastases to adrenals [Unknown]
  - Ascites [Not Recovered/Not Resolved]
  - Metastases to retroperitoneum [Unknown]
  - Vena cava thrombosis [Unknown]
  - Metastases to lung [Unknown]
  - Metastases to liver [Unknown]
  - Movement disorder [Unknown]
  - General symptom [Unknown]
  - Pleural effusion [Unknown]
  - Peripheral swelling [Recovered/Resolved]
  - Blood creatinine increased [Unknown]
  - Groin pain [Unknown]
  - Lymphadenopathy mediastinal [Unknown]
  - Retroperitoneal lymphadenopathy [Unknown]
  - Pain in extremity [Unknown]
  - Fatigue [Unknown]
  - Swelling [Unknown]
  - Malaise [Unknown]

NARRATIVE: CASE EVENT DATE: 20200501
